FAERS Safety Report 13072242 (Version 1)
Quarter: 2016Q4

REPORT INFORMATION
  Report Type: Report from Study
  Country: US (occurrence: US)
  Receive Date: 20161229
  Receipt Date: 20161229
  Transmission Date: 20170207
  Serious: Yes (Death, Hospitalization)
  Sender: FDA-Public Use
  Company Number: US-ACTELION-A-US2016-147384

PATIENT
  Age: 82 Year
  Sex: Male

DRUGS (1)
  1. OPSUMIT [Suspect]
     Active Substance: MACITENTAN
     Indication: PULMONARY HYPERTENSION
     Dosage: 10 MG, UNK
     Route: 048
     Dates: start: 20140812, end: 20161213

REACTIONS (5)
  - Thrombosis [Fatal]
  - Musculoskeletal pain [Unknown]
  - Dyspnoea [Unknown]
  - Sepsis [Fatal]
  - Kidney infection [Fatal]

NARRATIVE: CASE EVENT DATE: 20161213
